FAERS Safety Report 14704854 (Version 3)
Quarter: 2018Q2

REPORT INFORMATION
  Report Type: Report from Study
  Country: TH (occurrence: TH)
  Receive Date: 20180402
  Receipt Date: 20180611
  Transmission Date: 20180711
  Serious: Yes (Hospitalization)
  Sender: FDA-Public Use
  Company Number: TH-JNJFOC-20180338434

PATIENT
  Age: 72 Year
  Sex: Male

DRUGS (2)
  1. PREDNISOLONE. [Concomitant]
     Active Substance: PREDNISOLONE
     Indication: PRODUCT USED FOR UNKNOWN INDICATION
     Route: 065
  2. ZYTIGA [Suspect]
     Active Substance: ABIRATERONE ACETATE
     Indication: PROSTATE CANCER METASTATIC
     Dosage: RECEIVED 8 BOXES
     Route: 048
     Dates: start: 20170703, end: 20180324

REACTIONS (4)
  - Anaemia [Recovered/Resolved]
  - Drug ineffective [Unknown]
  - Electrolyte imbalance [Recovered/Resolved]
  - Prostatic specific antigen increased [Not Recovered/Not Resolved]

NARRATIVE: CASE EVENT DATE: 20180320
